FAERS Safety Report 23381846 (Version 1)
Quarter: 2024Q1

REPORT INFORMATION
  Report Type: Spontaneous
  Country: None (occurrence: ES)
  Receive Date: 20240109
  Receipt Date: 20240109
  Transmission Date: 20240410
  Serious: No
  Sender: FDA-Public Use
  Company Number: ES-Harrow Eye-2150672

PATIENT
  Age: 63 Year
  Sex: Female

DRUGS (3)
  1. VERKAZIA [Suspect]
     Active Substance: CYCLOSPORINE
     Indication: Sympathetic ophthalmia
     Route: 065
  2. MYCOPHENOLATE MOFETIL [Concomitant]
     Active Substance: MYCOPHENOLATE MOFETIL
  3. TOCILIZUMAB [Concomitant]
     Active Substance: TOCILIZUMAB

REACTIONS (2)
  - Off label use [None]
  - Drug ineffective for unapproved indication [None]
